FAERS Safety Report 15291370 (Version 1)
Quarter: 2018Q3

REPORT INFORMATION
  Report Type: Spontaneous
  Country: US (occurrence: US)
  Receive Date: 20180805
  Receipt Date: 20180805
  Transmission Date: 20181010
  Serious: Yes (Hospitalization, Disabling)
  Sender: FDA-Public Use
  Company Number: None

PATIENT
  Age: 39 Year
  Sex: Male
  Weight: 128.25 kg

DRUGS (1)
  1. CLONAZEPAM 0.1 MG/ML SUSP. [Suspect]
     Active Substance: CLONAZEPAM
     Indication: THERAPY CESSATION
     Route: 048
     Dates: start: 20180401

REACTIONS (4)
  - Suicidal ideation [None]
  - Emotional distress [None]
  - Confusional state [None]
  - Akathisia [None]

NARRATIVE: CASE EVENT DATE: 20180516
